FAERS Safety Report 13176460 (Version 1)
Quarter: 2017Q1

REPORT INFORMATION
  Report Type: Spontaneous
  Country: US (occurrence: US)
  Receive Date: 20170201
  Receipt Date: 20170201
  Transmission Date: 20170428
  Serious: Yes (Hospitalization)
  Sender: FDA-Public Use
  Company Number: US-MYLANLABS-2017M1005873

PATIENT

DRUGS (1)
  1. TACROLIMUS. [Suspect]
     Active Substance: TACROLIMUS
     Indication: PRODUCT USED FOR UNKNOWN INDICATION
     Dosage: 0.15-0.30MG/KG PER DAY IN TWO DIVIDED DOSES
     Route: 048

REACTIONS (5)
  - Condition aggravated [Unknown]
  - Ataxia [Unknown]
  - Asthenia [Unknown]
  - Tremor [Unknown]
  - Dysarthria [Unknown]
